FAERS Safety Report 19651782 (Version 1)
Quarter: 2021Q3

REPORT INFORMATION
  Report Type: Spontaneous
  Country: US (occurrence: US)
  Receive Date: 20210803
  Receipt Date: 20210803
  Transmission Date: 20211014
  Serious: No
  Sender: FDA-Public Use
  Company Number: None

PATIENT
  Age: 40 Year
  Sex: Female
  Weight: 60.78 kg

DRUGS (1)
  1. COSENTYX [Suspect]
     Active Substance: SECUKINUMAB
     Indication: PSORIATIC ARTHROPATHY
     Dosage: 150 MG(1 PEN)  ONCE AWEEK FOR 5 WEEKS
     Route: 058
     Dates: start: 202007

REACTIONS (4)
  - General physical health deterioration [None]
  - Treatment noncompliance [None]
  - Pyrexia [None]
  - Malaise [None]
